FAERS Safety Report 6467535-1 (Version None)
Quarter: 2009Q4

REPORT INFORMATION
  Report Type: 
  Country: None (occurrence: None)
  Receive Date: 20091127
  Receipt Date: 20091104
  Transmission Date: 20100525
  Serious: Yes (Hospitalization, Other)
  Sender: FDA-Public Use
  Company Number: AUR-APL-2009-01184

PATIENT
  Age: 71 Year
  Sex: Female

DRUGS (10)
  1. METFORMIN [Suspect]
     Indication: DIABETES MELLITUS
     Dosage: 1G, BID
  2. ATENOLOL [Suspect]
  3. ALLOPURINOL [Suspect]
  4. ASPIRIN [Suspect]
  5. BENDROFLUMETHIAZIDE [Suspect]
  6. CLOPIDOGREL [Suspect]
  7. DOXAZOSIN MESYLATE [Suspect]
  8. GLICLAZIDE [Suspect]
     Dosage: 80 MG - BID
  9. IRBESARTAN [Suspect]
  10. PERINDOPRIL [Suspect]

REACTIONS (9)
  - COMA [None]
  - DEHYDRATION [None]
  - HYPOGLYCAEMIA [None]
  - HYPOTHERMIA [None]
  - LACTIC ACIDOSIS [None]
  - LOWER RESPIRATORY TRACT INFECTION [None]
  - RENAL CYST [None]
  - RENAL FAILURE ACUTE [None]
  - TACHYPNOEA [None]
